FAERS Safety Report 4658921-0 (Version None)
Quarter: 2005Q2

REPORT INFORMATION
  Report Type: 
  Country: None (occurrence: None)
  Receive Date: 20050509
  Receipt Date: 20050428
  Transmission Date: 20051028
  Serious: Yes (Other)
  Sender: FDA-Public Use
  Company Number: CHNY2005DE00895

PATIENT
  Sex: Female

DRUGS (1)
  1. NICOTINE [Suspect]
     Dosage: 21 MG, QD, TRANSDERMAL
     Route: 062

REACTIONS (7)
  - HYPOAESTHESIA [None]
  - LOCAL SWELLING [None]
  - PARAESTHESIA [None]
  - PYREXIA [None]
  - SPEECH DISORDER [None]
  - SWELLING FACE [None]
  - SWOLLEN TONGUE [None]
